FAERS Safety Report 17503307 (Version 2)
Quarter: 2020Q1

REPORT INFORMATION
  Report Type: Spontaneous
  Country: GB (occurrence: GB)
  Receive Date: 20200305
  Receipt Date: 20200320
  Transmission Date: 20200409
  Serious: Yes (Hospitalization, Other)
  Sender: FDA-Public Use
  Company Number: GB-SA-2020SA056412

PATIENT
  Age: 63 Year
  Sex: Female

DRUGS (3)
  1. URSODEOXYCHOLIC ACID [Suspect]
     Active Substance: URSODIOL
     Indication: CHOLESTASIS
     Dosage: 750 MG, QD
  2. RIFAMPICIN [Suspect]
     Active Substance: RIFAMPIN
     Indication: CHOLESTASIS
     Dosage: 150 MG
  3. FLUCLOXACILLIN [Suspect]
     Active Substance: FLUCLOXACILLIN
     Indication: SKIN INFECTION
     Dosage: UNK

REACTIONS (16)
  - Cachexia [Recovered/Resolved with Sequelae]
  - Cholestasis [Recovered/Resolved with Sequelae]
  - Decreased appetite [Recovered/Resolved with Sequelae]
  - Weight decreased [Recovered/Resolved with Sequelae]
  - Jaundice [Recovered/Resolved with Sequelae]
  - Drug-induced liver injury [Recovered/Resolved with Sequelae]
  - Pruritus [Recovered/Resolved with Sequelae]
  - Lethargy [Recovered/Resolved with Sequelae]
  - Blood bilirubin increased [Recovered/Resolved with Sequelae]
  - Ocular icterus [Recovered/Resolved with Sequelae]
  - Hyperbilirubinaemia [Recovered/Resolved with Sequelae]
  - Portal tract inflammation [Recovered/Resolved with Sequelae]
  - Vanishing bile duct syndrome [Recovered/Resolved with Sequelae]
  - Blood alkaline phosphatase increased [Recovered/Resolved with Sequelae]
  - Aspartate aminotransferase increased [Recovered/Resolved with Sequelae]
  - Gamma-glutamyltransferase decreased [Recovered/Resolved with Sequelae]
